FAERS Safety Report 24755323 (Version 1)
Quarter: 2024Q4

REPORT INFORMATION
  Report Type: Report from Study
  Country: US (occurrence: US)
  Receive Date: 20241219
  Receipt Date: 20241219
  Transmission Date: 20250114
  Serious: Yes (Death, Other)
  Sender: BRISTOL-MYERS SQUIBB COMPANY
  Company Number: US-CELGENE-USA-2015116410

PATIENT

DRUGS (2)
  1. AZACITIDINE [Suspect]
     Active Substance: AZACITIDINE
     Indication: Myelodysplastic syndrome
     Route: 042
  2. BIRINAPANT [Suspect]
     Active Substance: BIRINAPANT
     Indication: Myelodysplastic syndrome
     Dosage: FREQUENCY TEXT: 2X/ WEEK FOR 3 WEEKS
     Route: 042

REACTIONS (1)
  - Sepsis [Fatal]
